FAERS Safety Report 5661392-9 (Version None)
Quarter: 2008Q1

REPORT INFORMATION
  Report Type: 
  Country: None (occurrence: None)
  Receive Date: 20080311
  Receipt Date: 20080228
  Transmission Date: 20080703
  Serious: Yes (Disabling)
  Sender: FDA-Public Use
  Company Number: FR-PFIZER INC-2008019345

PATIENT
  Age: 41 Year
  Sex: Female

DRUGS (2)
  1. NEURONTIN [Suspect]
     Indication: EPILEPSY
  2. ACETAMINOPHEN [Concomitant]

REACTIONS (8)
  - DIARRHOEA [None]
  - FEELING COLD [None]
  - FORMICATION [None]
  - INSOMNIA [None]
  - MUSCULOSKELETAL STIFFNESS [None]
  - MYALGIA [None]
  - PAIN [None]
  - VOMITING [None]
